FAERS Safety Report 15074555 (Version 1)
Quarter: 2018Q2

REPORT INFORMATION
  Report Type: Spontaneous
  Country: US (occurrence: US)
  Receive Date: 20180627
  Receipt Date: 20180627
  Transmission Date: 20180711
  Serious: Yes (Other)
  Sender: FDA-Public Use
  Company Number: US-SAOL THERAPEUTICS-2018SAO00504

PATIENT
  Age: 7 Year
  Sex: Male

DRUGS (1)
  1. BACLOFEN. [Suspect]
     Active Substance: BACLOFEN
     Indication: MUSCLE SPASTICITY
     Dosage: UNK ?G, \DAY
     Route: 037

REACTIONS (5)
  - Device alarm issue [Unknown]
  - Implant site extravasation [Unknown]
  - Infusion site mass [Not Recovered/Not Resolved]
  - Infection [Unknown]
  - Contusion [Unknown]

NARRATIVE: CASE EVENT DATE: 2017
